FAERS Safety Report 4532387-3 (Version None)
Quarter: 2004Q4

REPORT INFORMATION
  Report Type: 
  Country: None (occurrence: None)
  Receive Date: 20041217
  Receipt Date: 20041202
  Transmission Date: 20050328
  Serious: Yes (Hospitalization, Other)
  Sender: FDA-Public Use
  Company Number: USA-2004-0017980

PATIENT
  Age: 52 Year
  Sex: Female

DRUGS (10)
  1. MS CONTIN [Suspect]
     Indication: PAIN
     Dosage: 200 MG, BID
  2. MORPHINE SULFATE [Concomitant]
  3. ROXICODONE [Concomitant]
  4. DILAUDID [Concomitant]
  5. SYNTHROID [Concomitant]
  6. VITAMIN B12 [Concomitant]
  7. ESTRACE [Concomitant]
  8. SOMA [Concomitant]
  9. ACTONEL (RISEDRONATE SODIUM0 [Concomitant]
  10. PHENERGAN [Concomitant]

REACTIONS (17)
  - ARTHRALGIA [None]
  - BLOOD PRESSURE DIASTOLIC DECREASED [None]
  - CONTUSION [None]
  - DRUG DEPENDENCE [None]
  - DRUG TOLERANCE [None]
  - EAR PAIN [None]
  - FACE INJURY [None]
  - FACIAL PAIN [None]
  - INADEQUATE ANALGESIA [None]
  - MIGRAINE [None]
  - MUSCLE SPASMS [None]
  - PAIN [None]
  - PHARYNGITIS [None]
  - POST-TRAUMATIC HEADACHE [None]
  - TINNITUS [None]
  - TOOTHACHE [None]
  - UPPER RESPIRATORY TRACT INFECTION [None]
